FAERS Safety Report 8942012 (Version 2)
Quarter: 2013Q1

REPORT INFORMATION
  Report Type: Spontaneous
  Country: US (occurrence: US)
  Receive Date: 20121130
  Receipt Date: 20130118
  Transmission Date: 20140127
  Serious: Yes (Hospitalization)
  Sender: FDA-Public Use
  Company Number: US-B.I. PHARMACEUTICALS,INC./RIDGEFIELD-2012-BI-01493BP

PATIENT
  Age: 76 Year
  Sex: Male
  Weight: 73 kg

DRUGS (6)
  1. PRADAXA [Suspect]
     Indication: ATRIAL FIBRILLATION
     Dosage: 300 MG
     Route: 048
     Dates: start: 2010
  2. ALTACE [Concomitant]
     Route: 048
  3. ZOCOR [Concomitant]
     Indication: BLOOD CHOLESTEROL INCREASED
     Route: 048
  4. TOPROL [Concomitant]
     Route: 048
  5. DIGITALIS [Concomitant]
     Route: 048
  6. AVADART [Concomitant]
     Indication: PROSTATOMEGALY
     Route: 048

REACTIONS (2)
  - Lower gastrointestinal haemorrhage [Recovered/Resolved]
  - Diverticulum [Recovered/Resolved]
